FAERS Safety Report 8935995 (Version 2)
Quarter: 2013Q1

REPORT INFORMATION
  Report Type: Spontaneous
  Country: US (occurrence: US)
  Receive Date: 20121130
  Receipt Date: 20130228
  Transmission Date: 20140127
  Serious: No
  Sender: FDA-Public Use
  Company Number: US-ABBOTT-12P-163-0989679-00

PATIENT
  Age: 63 None
  Sex: Male

DRUGS (4)
  1. ANDROGEL [Suspect]
     Indication: PRODUCT USED FOR UNKNOWN INDICATION
     Dosage: 2 PUMPS
     Route: 061
     Dates: start: 201209
  2. VIAGRA [Concomitant]
     Indication: ERECTILE DYSFUNCTION
     Dosage: UNKNOWN
  3. TRIMIX [Concomitant]
     Indication: ERECTILE DYSFUNCTION
     Dosage: UNKNOWN
     Route: 050
  4. IMITREX [Concomitant]
     Indication: MIGRAINE

REACTIONS (2)
  - Drug administered at inappropriate site [Not Recovered/Not Resolved]
  - Blood testosterone decreased [Not Recovered/Not Resolved]
